FAERS Safety Report 8029259 (Version 8)
Quarter: 2013Q2

REPORT INFORMATION
  Report Type: Spontaneous
  Country: US (occurrence: US)
  Receive Date: 20110711
  Receipt Date: 20130513
  Transmission Date: 20140414
  Serious: Yes (Hospitalization, Congenital Anomaly, Other)
  Sender: FDA-Public Use
  Company Number: US-PFIZER INC-2011151123

PATIENT
  Sex: Male
  Weight: 2.7 kg

DRUGS (25)
  1. ZOLOFT [Suspect]
     Indication: DEPRESSION
     Dosage: 25 MG, 1X/DAY (HALF OF 50MG TABLET), MORNING
     Route: 064
     Dates: start: 20060303, end: 200603
  2. ZOLOFT [Suspect]
     Dosage: 50 MG, 1X/DAY (MORNING)
     Route: 064
     Dates: start: 200603, end: 2006
  3. ZOLOFT [Suspect]
     Dosage: 100 MG, UNK
     Route: 064
     Dates: start: 20060518
  4. ZOLOFT [Suspect]
     Dosage: 100 MG, 1X/DAY
     Route: 064
     Dates: start: 20070404
  5. ZOLOFT [Suspect]
     Dosage: UNK
     Route: 064
     Dates: start: 20060303, end: 2008
  6. SERTRALINE [Concomitant]
     Indication: DEPRESSION
     Dosage: 100 MG, UNK
     Route: 064
     Dates: start: 20060824
  7. TYLENOL [Concomitant]
     Indication: PAIN
     Dosage: UNK
     Route: 064
     Dates: start: 20061103
  8. TYLENOL [Concomitant]
     Indication: MALAISE
     Dosage: 25-500MG
     Route: 064
     Dates: start: 20061201
  9. ZOFRAN [Concomitant]
     Indication: HYPEREMESIS GRAVIDARUM
     Dosage: 4 MG, UNK
     Route: 064
     Dates: start: 20060601
  10. REGLAN [Concomitant]
     Indication: VOMITING
     Dosage: 10 MG, AS NEEDED
     Route: 064
     Dates: start: 20061114
  11. REGLAN [Concomitant]
     Indication: NAUSEA
  12. PRENATAL VITAMINS [Concomitant]
     Indication: PRENATAL CARE
     Dosage: ONE PILL ONCE DAILY
     Route: 064
     Dates: start: 2006
  13. PRENATAL VITAMINS [Concomitant]
     Dosage: ONE PILL ONCE DAILY
     Route: 064
     Dates: start: 200701
  14. HYDROCODONE [Concomitant]
     Indication: MIGRAINE
     Dosage: UNK
     Route: 064
  15. HYDROCODONE W/ACETAMINOPHEN [Concomitant]
     Indication: MIGRAINE
     Dosage: 5MG/500MG
     Route: 064
     Dates: start: 20061108
  16. METOCLOPRAMIDE [Concomitant]
     Dosage: 10 MG, UNK
     Route: 064
     Dates: start: 20061114
  17. TYLENOL PM, EXTRA STRENGTH [Concomitant]
     Indication: PAIN
     Dosage: 500 MG, UNK
     Route: 064
     Dates: start: 20061201
  18. TYLENOL PM, EXTRA STRENGTH [Concomitant]
     Indication: MALAISE
  19. ZANTAC [Concomitant]
     Indication: DYSPEPSIA
     Dosage: UNK
     Route: 064
     Dates: start: 20061205
  20. REGLAN [Concomitant]
     Indication: HYPEREMESIS GRAVIDARUM
     Dosage: 5 MG, UNK
     Route: 064
     Dates: start: 20070104
  21. ONDANSETRON [Concomitant]
     Indication: HYPEREMESIS GRAVIDARUM
     Dosage: 4 MG, UNK
     Route: 064
     Dates: start: 20070316
  22. ALBUTEROL [Concomitant]
     Indication: ASTHMA
     Dosage: UNK
     Route: 064
     Dates: start: 20070507
  23. AMOXIL [Concomitant]
     Dosage: UNK
     Route: 064
     Dates: start: 20070507
  24. ZITHROMAX [Concomitant]
     Indication: INFECTION
     Dosage: UNK
     Route: 064
  25. ZITHROMAX [Concomitant]
     Indication: MALAISE

REACTIONS (18)
  - Foetal exposure during pregnancy [Unknown]
  - Truncus arteriosus persistent [Not Recovered/Not Resolved]
  - Coarctation of the aorta [Not Recovered/Not Resolved]
  - Atrial septal defect [Recovered/Resolved]
  - Ventricular septal defect [Not Recovered/Not Resolved]
  - Vocal cord paralysis [Unknown]
  - Aortic valve incompetence [Not Recovered/Not Resolved]
  - Tricuspid valve incompetence [Unknown]
  - Pulmonary valve incompetence [Not Recovered/Not Resolved]
  - Pulmonary congestion [Recovering/Resolving]
  - Pulmonary valve stenosis [Not Recovered/Not Resolved]
  - Phimosis [Unknown]
  - Pulmonary artery stenosis congenital [Unknown]
  - Aortic dilatation [Not Recovered/Not Resolved]
  - Cardiomegaly [Unknown]
  - Congenital anomaly [Unknown]
  - Gastrooesophageal reflux disease [Unknown]
  - Premature baby [Unknown]
